FAERS Safety Report 24260308 (Version 2)
Quarter: 2024Q4

REPORT INFORMATION
  Report Type: Spontaneous
  Country: US (occurrence: US)
  Receive Date: 20240828
  Receipt Date: 20241023
  Transmission Date: 20250115
  Serious: No
  Sender: SUNOVION
  Company Number: US-SUMITOMO PHARMA SWITZERLAND GMBH-2024SPA000786

PATIENT

DRUGS (1)
  1. GEMTESA [Suspect]
     Active Substance: VIBEGRON
     Indication: Pollakiuria
     Dosage: 0.5 DF
     Route: 048
     Dates: start: 20240501, end: 20240502

REACTIONS (2)
  - Neuralgia [Recovered/Resolved]
  - Pain in extremity [Recovered/Resolved]
